FAERS Safety Report 12964691 (Version 1)
Quarter: 2016Q4

REPORT INFORMATION
  Report Type: Spontaneous
  Country: US (occurrence: US)
  Receive Date: 20161122
  Receipt Date: 20161122
  Transmission Date: 20170207
  Serious: Yes (Death, Hospitalization)
  Sender: FDA-Public Use
  Company Number: US-IPCA LABORATORIES LIMITED-IPC201611-000952

PATIENT
  Age: 86 Day
  Sex: Male

DRUGS (2)
  1. PEDIALYTE [Concomitant]
     Active Substance: POTASSIUM CITRATE\SODIUM CITRATE\ZINC
     Route: 048
  2. ONDANSETRON [Suspect]
     Active Substance: ONDANSETRON
     Indication: VOMITING
     Route: 048

REACTIONS (3)
  - Supraventricular tachycardia [Fatal]
  - Cardiac arrest [Fatal]
  - Ventricular fibrillation [Fatal]
